FAERS Safety Report 20410170 (Version 1)
Quarter: 2022Q1

REPORT INFORMATION
  Report Type: Spontaneous
  Country: US (occurrence: None)
  Receive Date: 20220131
  Receipt Date: 20220131
  Transmission Date: 20220423
  Serious: Yes (Hospitalization)
  Sender: FDA-Public Use
  Company Number: None

PATIENT
  Age: 81 Year
  Sex: Female
  Weight: 64 kg

DRUGS (1)
  1. APIXABAN [Suspect]
     Active Substance: APIXABAN
     Indication: Atrial flutter
     Dosage: FREQUENCY : TWICE A DAY;?
     Route: 048
     Dates: start: 20210603, end: 20211020

REACTIONS (5)
  - Gastrointestinal haemorrhage [None]
  - Gastritis [None]
  - Polyp [None]
  - Diverticulum [None]
  - Haemorrhoids [None]

NARRATIVE: CASE EVENT DATE: 20211020
